FAERS Safety Report 5571033-7 (Version None)
Quarter: 2007Q4

REPORT INFORMATION
  Report Type: 
  Country: None (occurrence: None)
  Receive Date: 20071219
  Receipt Date: 20071212
  Transmission Date: 20080405
  Serious: Yes (Death, Hospitalization, Other)
  Sender: FDA-Public Use
  Company Number: 238345K06USA

PATIENT
  Age: 56 Year
  Sex: Female
  Weight: 90.7194 kg

DRUGS (5)
  1. REBIF [Suspect]
     Indication: MULTIPLE SCLEROSIS
     Dosage: 44 MCG, 3 IN 1 WEEKS, SUBCUTANEOUS
     Route: 058
     Dates: start: 20051012, end: 20070416
  2. ATENOLOL [Concomitant]
  3. CHOLESTEROL MEDICATION (OTHER CHOLESTEROL AND TRIGLYCERIDE REDUCERS) [Concomitant]
  4. LEVOTHYROXINE SODIUM [Concomitant]
  5. TEGRETOL [Concomitant]

REACTIONS (11)
  - ABASIA [None]
  - ATRIAL FIBRILLATION [None]
  - CARDIAC FAILURE CONGESTIVE [None]
  - CARDIAC VALVE DISEASE [None]
  - CEREBRAL HAEMORRHAGE [None]
  - CYSTITIS [None]
  - DYSPNOEA PAROXYSMAL NOCTURNAL [None]
  - MULTIPLE SCLEROSIS RELAPSE [None]
  - ORTHOPNOEA [None]
  - POST PROCEDURAL COMPLICATION [None]
  - WHEEZING [None]
